FAERS Safety Report 17870090 (Version 1)
Quarter: 2020Q2

REPORT INFORMATION
  Report Type: Spontaneous
  Country: US (occurrence: US)
  Receive Date: 20200605
  Receipt Date: 20200605
  Transmission Date: 20200714
  Serious: Yes (Other)
  Sender: FDA-Public Use
  Company Number: None

PATIENT
  Age: 84 Year
  Sex: Female
  Weight: 70.11 kg

DRUGS (11)
  1. PERCOCET [Concomitant]
     Active Substance: ACETAMINOPHEN\OXYCODONE HYDROCHLORIDE
  2. LOSARTAN. [Concomitant]
     Active Substance: LOSARTAN
  3. MULTIVITAMINS [Concomitant]
     Active Substance: VITAMINS
  4. ADVIL [Concomitant]
     Active Substance: IBUPROFEN
  5. ASPIRIN. [Concomitant]
     Active Substance: ASPIRIN
  6. CBD OIL [Concomitant]
     Active Substance: CANNABIDIOL\HERBALS
  7. APAP [Concomitant]
     Active Substance: ACETAMINOPHEN
  8. COREG [Concomitant]
     Active Substance: CARVEDILOL
  9. CAPECITABINE. [Suspect]
     Active Substance: CAPECITABINE
     Indication: COLON CANCER
     Route: 048
     Dates: start: 20200430
  10. CAPECITABINE. [Suspect]
     Active Substance: CAPECITABINE
     Indication: COLON CANCER
     Route: 048
     Dates: start: 20200430
  11. FLORAGEN [Concomitant]

REACTIONS (2)
  - Disease progression [None]
  - Hospice care [None]
